FAERS Safety Report 7568678-1 (Version None)
Quarter: 2011Q2

REPORT INFORMATION
  Report Type: 
  Country: None (occurrence: None)
  Receive Date: 20110617
  Receipt Date: 20110602
  Transmission Date: 20111010
  Serious: Yes (Other)
  Sender: FDA-Public Use
  Company Number: AUR-APL-2011-02853

PATIENT
  Age: 32 Year
  Sex: Male
  Weight: 82 kg

DRUGS (4)
  1. ALBUTEROL SULFATE [Concomitant]
  2. LOSARTAN POTASSIUM [Suspect]
     Indication: HYPERTENSION
     Dosage: (50 MG)
     Dates: start: 20100813, end: 20101109
  3. TEGRETOL [Concomitant]
  4. CLENTIL (BECLOMETASONE DIPROPIONATE) [Concomitant]

REACTIONS (1)
  - CONVULSION [None]
